FAERS Safety Report 6726657-8 (Version None)
Quarter: 2010Q2

REPORT INFORMATION
  Report Type: 
  Country: None (occurrence: None)
  Receive Date: 20100514
  Receipt Date: 20100507
  Transmission Date: 20101027
  Serious: Yes (Other)
  Sender: FDA-Public Use
  Company Number: CA-ABBOTT-10P-028-0643488-00

PATIENT
  Sex: Male
  Weight: 83.99 kg

DRUGS (2)
  1. HUMIRA [Suspect]
     Indication: CROHN'S DISEASE
     Route: 058
     Dates: start: 20100324
  2. BLOOD THINNER [Concomitant]
     Indication: DRUG USE FOR UNKNOWN INDICATION

REACTIONS (4)
  - MASS [None]
  - PAIN [None]
  - RASH [None]
  - RASH MACULAR [None]
